FAERS Safety Report 6541357-5 (Version None)
Quarter: 2010Q1

REPORT INFORMATION
  Report Type: 
  Country: None (occurrence: None)
  Receive Date: 20100118
  Receipt Date: 20100107
  Transmission Date: 20100710
  Serious: Yes (Other)
  Sender: FDA-Public Use
  Company Number: PHHY2010ES00927

PATIENT
  Age: 61 Year
  Sex: Female

DRUGS (2)
  1. ZOMETA [Suspect]
     Indication: MULTIPLE MYELOMA
     Dosage: 4 MG, QMO
     Route: 042
     Dates: start: 20080901, end: 20090901
  2. ZOMETA [Suspect]
     Indication: OSTEOLYSIS

REACTIONS (4)
  - BONE DISORDER [None]
  - INFECTION [None]
  - OSTEONECROSIS [None]
  - PAIN [None]
